FAERS Safety Report 8359157 (Version 3)
Quarter: 2013Q1

REPORT INFORMATION
  Report Type: Spontaneous
  Country: US (occurrence: US)
  Receive Date: 20120127
  Receipt Date: 20130125
  Transmission Date: 20140127
  Serious: Yes (Death, Other)
  Sender: FDA-Public Use
  Company Number: US-ELI_LILLY_AND_COMPANY-US201201006627

PATIENT
  Age: 57 Year
  Sex: Female

DRUGS (5)
  1. BYETTA [Suspect]
     Route: 058
  2. BYDUREON [Suspect]
     Dosage: UNK, UNKNOWN
     Route: 058
     Dates: start: 201007, end: 20101217
  3. ACTOS                                   /USA/ [Concomitant]
     Dosage: 45 MG, QD
  4. METFORMIN [Concomitant]
     Dosage: 1000 MG, BID
  5. GLIMEPIRIDE [Concomitant]
     Dosage: 2 MG, QD

REACTIONS (1)
  - Adenocarcinoma pancreas [Fatal]
